FAERS Safety Report 6043054-1 (Version None)
Quarter: 2009Q1

REPORT INFORMATION
  Report Type: 
  Country: None (occurrence: None)
  Receive Date: 20090119
  Receipt Date: 20090106
  Transmission Date: 20090719
  Serious: Yes (Hospitalization)
  Sender: FDA-Public Use
  Company Number: US-ELI_LILLY_AND_COMPANY-US200901000788

PATIENT
  Sex: Female

DRUGS (11)
  1. FORTEO [Suspect]
     Indication: HIP FRACTURE
     Dosage: 20 UG, DAILY (1/D)
     Dates: start: 20080711, end: 20081121
  2. FORTEO [Suspect]
     Dosage: 20 UG, DAILY (1/D)
     Dates: start: 20081206
  3. LEVOTHYROXINE SODIUM [Concomitant]
  4. SIMVASTATIN [Concomitant]
  5. FISH OIL [Concomitant]
  6. LUMIGAN [Concomitant]
  7. TIMOLOL [Concomitant]
  8. MEGA-VITA [Concomitant]
  9. CALCIUM W/VITAMIN D NOS [Concomitant]
  10. ASPIRIN [Concomitant]
  11. FUROSEMIDE [Concomitant]

REACTIONS (2)
  - HIP ARTHROPLASTY [None]
  - PAIN [None]
